FAERS Safety Report 12013002 (Version 7)
Quarter: 2017Q1

REPORT INFORMATION
  Report Type: Report from Study
  Country: GR (occurrence: GR)
  Receive Date: 20160205
  Receipt Date: 20170104
  Transmission Date: 20170428
  Serious: Yes (Hospitalization)
  Sender: FDA-Public Use
  Company Number: GR-SA-2016SA017692

PATIENT
  Age: 39 Year
  Sex: Female

DRUGS (29)
  1. XATRAL [Concomitant]
     Active Substance: ALFUZOSIN
     Indication: BLADDER DYSFUNCTION
     Route: 048
     Dates: start: 2014
  2. LAMOTRIX [Concomitant]
     Active Substance: LAMOTRIGINE
     Indication: DRUG THERAPY
     Route: 048
     Dates: start: 2010
  3. SEROQUEL [Concomitant]
     Active Substance: QUETIAPINE FUMARATE
     Indication: PSYCHOTIC DISORDER
     Route: 048
     Dates: start: 2010
  4. MIOREL [Concomitant]
     Active Substance: THIOCOLCHICOSIDE
     Indication: DRUG THERAPY
     Route: 048
     Dates: start: 2008
  5. SEROQUEL [Concomitant]
     Active Substance: QUETIAPINE FUMARATE
     Indication: DRUG THERAPY
     Route: 048
     Dates: start: 2010
  6. SOLU-MEDROL [Concomitant]
     Active Substance: METHYLPREDNISOLONE SODIUM SUCCINATE
     Indication: PROPHYLAXIS
     Route: 042
     Dates: start: 20160118, end: 20160121
  7. FENISTIL [Concomitant]
     Active Substance: DIMETHINDENE
     Indication: PROPHYLAXIS
     Route: 042
     Dates: start: 20160118, end: 20160121
  8. ZIRTEK [Concomitant]
     Active Substance: CETIRIZINE HYDROCHLORIDE
     Indication: PROPHYLAXIS
     Route: 048
     Dates: start: 20160114
  9. LEMTRADA [Suspect]
     Active Substance: ALEMTUZUMAB
     Indication: MULTIPLE SCLEROSIS RELAPSE
     Route: 042
     Dates: start: 20160121, end: 20160122
  10. BESPAR [Concomitant]
     Active Substance: BUSPIRONE HYDROCHLORIDE
     Indication: DRUG THERAPY
     Route: 048
     Dates: start: 2010
  11. LORDIN [Concomitant]
     Active Substance: OMEPRAZOLE
     Indication: PROPHYLAXIS
     Route: 042
     Dates: start: 20160118, end: 20160121
  12. APOTEL [Concomitant]
     Active Substance: ACETAMINOPHEN
     Indication: PROPHYLAXIS
     Route: 042
     Dates: start: 20160118, end: 20160121
  13. LAMOTRIX [Concomitant]
     Active Substance: LAMOTRIGINE
     Indication: PSYCHOTIC DISORDER
     Route: 048
     Dates: start: 2010
  14. PERONTEN [Concomitant]
     Indication: DRUG THERAPY
     Route: 048
     Dates: start: 201111
  15. APOTEL [Concomitant]
     Active Substance: ACETAMINOPHEN
     Indication: PROPHYLAXIS
     Route: 042
     Dates: start: 20160124, end: 20160125
  16. ZOFRON [Concomitant]
     Active Substance: ONDANSETRON
     Indication: PROPHYLAXIS
     Route: 042
     Dates: start: 20160118, end: 20160121
  17. XANAX [Concomitant]
     Active Substance: ALPRAZOLAM
     Indication: PSYCHOTIC DISORDER
     Route: 048
     Dates: start: 201511
  18. FOSFOCIN [Concomitant]
     Indication: URINARY TRACT INFECTION
     Dosage: 3GR OD ONCE A WEEK
     Route: 048
     Dates: start: 201402
  19. LEMTRADA [Suspect]
     Active Substance: ALEMTUZUMAB
     Indication: MULTIPLE SCLEROSIS RELAPSE
     Route: 042
     Dates: start: 20160118, end: 20160120
  20. XATRAL [Concomitant]
     Active Substance: ALFUZOSIN
     Indication: DRUG THERAPY
     Route: 048
     Dates: start: 2014
  21. BESPAR [Concomitant]
     Active Substance: BUSPIRONE HYDROCHLORIDE
     Indication: PSYCHOTIC DISORDER
     Route: 048
     Dates: start: 2010
  22. ESCITALOPRAM [Concomitant]
     Active Substance: ESCITALOPRAM OXALATE
     Indication: DRUG THERAPY
     Route: 048
     Dates: start: 201509
  23. VALTREX [Concomitant]
     Active Substance: VALACYCLOVIR HYDROCHLORIDE
     Indication: PROPHYLAXIS
     Route: 048
     Dates: start: 20160118
  24. MIOREL [Concomitant]
     Active Substance: THIOCOLCHICOSIDE
     Indication: BLADDER DYSFUNCTION
     Route: 048
     Dates: start: 2008
  25. ESCITALOPRAM [Concomitant]
     Active Substance: ESCITALOPRAM OXALATE
     Indication: PSYCHOTIC DISORDER
     Route: 048
     Dates: start: 201509
  26. XANAX [Concomitant]
     Active Substance: ALPRAZOLAM
     Indication: DRUG THERAPY
     Route: 048
     Dates: start: 201511
  27. PERONTEN [Concomitant]
     Indication: PSYCHOTIC DISORDER
     Route: 048
     Dates: start: 201111
  28. SOLU-MEDROL [Concomitant]
     Active Substance: METHYLPREDNISOLONE SODIUM SUCCINATE
     Indication: PROPHYLAXIS
     Route: 042
     Dates: start: 20160122, end: 20160122
  29. LUMAREN [Concomitant]
     Indication: PROPHYLAXIS
     Route: 048
     Dates: start: 20160114

REACTIONS (8)
  - Bradycardia [Recovered/Resolved]
  - Leukocytosis [Recovered/Resolved]
  - Bradycardia [Recovered/Resolved]
  - Pyrexia [Recovered/Resolved]
  - Pyrexia [Recovered/Resolved]
  - C-reactive protein increased [Recovered/Resolved]
  - Stomatitis [Recovered/Resolved]
  - Respiratory tract infection [Recovered/Resolved]

NARRATIVE: CASE EVENT DATE: 20160118
